FAERS Safety Report 20912628 (Version 1)
Quarter: 2022Q2

REPORT INFORMATION
  Report Type: Report from Study
  Country: US (occurrence: US)
  Receive Date: 20220603
  Receipt Date: 20220603
  Transmission Date: 20220721
  Serious: Yes (Hospitalization)
  Sender: FDA-Public Use
  Company Number: US-OTSUKA-2022_029730

PATIENT
  Sex: Male
  Weight: 86.18 kg

DRUGS (3)
  1. TOLVAPTAN [Suspect]
     Active Substance: TOLVAPTAN
     Indication: Congenital cystic kidney disease
     Dosage: 60 MG (UPON WAKING)
     Route: 048
     Dates: start: 20210819
  2. TOLVAPTAN [Suspect]
     Active Substance: TOLVAPTAN
     Indication: Congenital cystic kidney disease
     Dosage: 30 MG (8 HOURS LATER)
     Route: 048
     Dates: start: 20210819
  3. NIFEDIPINE [Concomitant]
     Active Substance: NIFEDIPINE
     Indication: Product used for unknown indication
     Dosage: 30 MG ER
     Route: 065

REACTIONS (3)
  - Hypertension [Unknown]
  - Alkalosis [Unknown]
  - Dehydration [Unknown]
